FAERS Safety Report 9386971 (Version 1)
Quarter: 2013Q3

REPORT INFORMATION
  Report Type: Spontaneous
  Country: AU (occurrence: None)
  Receive Date: 20130702
  Receipt Date: 20130702
  Transmission Date: 20140515
  Serious: Yes (Hospitalization)
  Sender: FDA-Public Use
  Company Number: AUR-APL-2013-05426

PATIENT
  Age: 77 Year
  Sex: Female

DRUGS (17)
  1. RAMIPRIL (RAMIPRIL) [Suspect]
     Indication: PRODUCT USED FOR UNKNOWN INDICATION
     Dosage: 2.5 MG (2.5 MG, 1 IN 1 D), UNKNOWN
     Dates: start: 20130409
  2. METFORMIN (METFORMIN) [Suspect]
     Indication: PRODUCT USED FOR UNKNOWN INDICATION
     Dosage: 1 GM (1 GM, 1 IN 1 D), UNKNOWN
  3. SIMVASTATIN (SIMVASTATIN) [Suspect]
     Indication: PRODUCT USED FOR UNKNOWN INDICATION
     Dosage: 20 MG (20 MG, 1 IN 1 D), UNKNOWN
  4. PARACETAMOL (PARACETAMOL) [Suspect]
     Indication: PRODUCT USED FOR UNKNOWN INDICATION
     Dosage: 4 GM (4 GM, 1 IN 1 D), UNKNOWN
     Dates: start: 20130407
  5. LATANOPROST [Suspect]
     Indication: PRODUCT USED FOR UNKNOWN INDICATION
  6. SPIRONOLACTONE (SPIRONOLACTONE) [Suspect]
     Indication: PRODUCT USED FOR UNKNOWN INDICATION
     Dosage: 12.5 MG (12.5 MG, 1 IN 1 D), UNKNOWN
     Dates: start: 20130409
  7. TRIAMCINOLONE ACETONIDE [Suspect]
     Indication: PRODUCT USED FOR UNKNOWN INDICATION
  8. PILOCARPINE HYDROCHLORIDE [Suspect]
     Indication: PRODUCT USED FOR UNKNOWN INDICATION
  9. FRUSEMIDE (FUROSEMIDE) [Suspect]
     Indication: PRODUCT USED FOR UNKNOWN INDICATION
     Dosage: 120 MG, (120 MG, 1 IN 1 D), UNKNOWN
     Dates: start: 20130409
  10. FRUSEMIDE (FUROSEMIDE) [Suspect]
     Dosage: 120 MG, (120 MG, 1 IN 1 D), UNKNOWN
     Dates: start: 20130409
  11. COUMADIN [Suspect]
     Indication: PRODUCT USED FOR UNKNOWN INDICATION
     Dosage: 6 MG (6 MG, 1 IN 1D) UNKNOWN
     Dates: start: 20130409
  12. FLUCLOXACILLIN SODIUM [Suspect]
     Indication: PRODUCT USED FOR UNKNOWN INDICATION
     Dosage: 1000 MG (1000 MG 1 IN 1D) UNKNOWN
     Dates: start: 20130402, end: 20130409
  13. ASPIRIN (ACETYLSALICYLIC ACID) [Suspect]
     Indication: PRODUCT USED FOR UNKNOWN INDICATION
     Dosage: 100 MG (100 MG, 1 IN 1D) UNKNOWN
     Dates: start: 20130409
  14. GLICLAZIDE (GLICLAZIDE) [Suspect]
     Indication: PRODUCT USED FOR UNKNOWN INDICATION
     Dosage: 30 MG (30 MG, 1 IN 1D) UNKNOWN
     Dates: start: 20130409
  15. OXYCODONE (OXYCODONE) [Suspect]
     Indication: PRODUCT USED FOR UNKNOWN INDICATION
     Dosage: 20 MG (20 MG, 1 IN 1D), UNKNOWN
     Dates: start: 20130407
  16. SITAGLIPTIN PHOSPHATE [Suspect]
     Indication: PRODUCT USED FOR UNKNOWN INDICATION
     Dosage: 50 GM (50 GM, 1 IN 1 D), UNKNOWN
     Dates: start: 20130409
  17. FERROUS FUMARATE/ FOLIC ACID [Suspect]
     Indication: PRODUCT USED FOR UNKNOWN INDICATION
     Dates: start: 20130406

REACTIONS (5)
  - Rectal haemorrhage [None]
  - Calciphylaxis [None]
  - Dialysis [None]
  - International normalised ratio increased [None]
  - Diabetic ulcer [None]
